FAERS Safety Report 23646267 (Version 1)
Quarter: 2024Q1

REPORT INFORMATION
  Report Type: Report from Study
  Country: CA (occurrence: CA)
  Receive Date: 20240319
  Receipt Date: 20240319
  Transmission Date: 20240410
  Serious: Yes (Other)
  Sender: FDA-Public Use
  Company Number: CA-JNJFOC-20231014108

PATIENT
  Age: 29 Year
  Sex: Female
  Weight: 51 kg

DRUGS (1)
  1. REMICADE [Suspect]
     Active Substance: INFLIXIMAB
     Indication: Crohn^s disease
     Dosage: THERAPY START ALSO GIVEN AS 18/JUL/2019?V3: THERAPY START DATE: 05/JUL/2019?V3:THERAPY END DATE: 11/
     Route: 041
     Dates: start: 20190701, end: 20240229

REACTIONS (5)
  - Superinfection [Unknown]
  - Pseudomonas infection [Unknown]
  - Furuncle [Not Recovered/Not Resolved]
  - Otitis externa [Unknown]
  - Nasal congestion [Unknown]

NARRATIVE: CASE EVENT DATE: 20230101
